FAERS Safety Report 16402056 (Version 2)
Quarter: 2019Q3

REPORT INFORMATION
  Report Type: Report from Study
  Country: BR (occurrence: BR)
  Receive Date: 20190607
  Receipt Date: 20190902
  Transmission Date: 20191004
  Serious: Yes (Other)
  Sender: FDA-Public Use
  Company Number: PHHY2019BR128649

PATIENT
  Age: 58 Year
  Sex: Female

DRUGS (10)
  1. OMEGA 3 [Concomitant]
     Active Substance: OMEGA-3 FATTY ACIDS
     Indication: HIATUS HERNIA
     Dosage: 1 DF, TID
     Route: 048
  2. ETANERCEPT [Suspect]
     Active Substance: ETANERCEPT
     Dosage: 1 SYRINGE PER WEEK, 4X PER MONTH
     Route: 058
     Dates: start: 2015
  3. METHOTREXATE. [Suspect]
     Active Substance: METHOTREXATE
     Indication: PRODUCT USED FOR UNKNOWN INDICATION
     Route: 065
  4. LAMOTRIGINE. [Concomitant]
     Active Substance: LAMOTRIGINE
     Indication: DEPRESSION
     Dosage: 2 DF, BID
     Route: 048
  5. INDAPAMIDE. [Concomitant]
     Active Substance: INDAPAMIDE
     Indication: HYPERTENSION
     Dosage: 1 DF, BID
     Route: 048
  6. ALGY-FLANDERIL [Concomitant]
     Indication: PSORIATIC ARTHROPATHY
     Dosage: 1 DF, QD
     Route: 065
  7. OMEPRAZOLE. [Concomitant]
     Active Substance: OMEPRAZOLE
     Indication: HIATUS HERNIA
     Dosage: 1 DF, TID
     Route: 048
  8. FLUOXETINE [Concomitant]
     Active Substance: FLUOXETINE HYDROCHLORIDE
     Indication: DEPRESSION
     Dosage: 2 DF, UNK
     Route: 048
  9. ETANERCEPT [Suspect]
     Active Substance: ETANERCEPT
     Indication: PSORIATIC ARTHROPATHY
     Dosage: 1 SYRINGE PER WEEK, 4X PER MONTH
     Route: 058
     Dates: start: 20141002
  10. LOSARTAN. [Concomitant]
     Active Substance: LOSARTAN
     Indication: HYPERTENSION
     Dosage: 1 DF, BID
     Route: 048

REACTIONS (12)
  - Arthralgia [Unknown]
  - Drug ineffective [Unknown]
  - Back pain [Recovering/Resolving]
  - Nail disorder [Recovering/Resolving]
  - Laryngitis [Recovering/Resolving]
  - Skin fissures [Recovering/Resolving]
  - Finger deformity [Recovering/Resolving]
  - Mouth ulceration [Recovering/Resolving]
  - Loss of consciousness [Unknown]
  - Psoriatic arthropathy [Unknown]
  - Peripheral swelling [Unknown]
  - Arthropathy [Recovering/Resolving]

NARRATIVE: CASE EVENT DATE: 20190523
